FAERS Safety Report 16996954 (Version 2)
Quarter: 2019Q4

REPORT INFORMATION
  Report Type: Spontaneous
  Country: US (occurrence: US)
  Receive Date: 20191106
  Receipt Date: 20191224
  Transmission Date: 20200122
  Serious: No
  Sender: FDA-Public Use
  Company Number: US-UNITED THERAPEUTICS-UNT-2019-010728

PATIENT
  Sex: Male
  Weight: 67.98 kg

DRUGS (4)
  1. ADCIRCA [Concomitant]
     Active Substance: TADALAFIL
     Indication: PULMONARY ARTERIAL HYPERTENSION
     Dosage: UNK
     Route: 065
  2. TYVASO [Suspect]
     Active Substance: TREPROSTINIL
     Dosage: UNK
     Dates: end: 201906
  3. TYVASO [Suspect]
     Active Substance: TREPROSTINIL
     Indication: PULMONARY ARTERIAL HYPERTENSION
     Dosage: 18-54 ?G, QID
     Dates: start: 20181212
  4. TYVASO [Suspect]
     Active Substance: TREPROSTINIL
     Dosage: UNK, (1 BREATH EVERY 3 DAYS)

REACTIONS (4)
  - Walking distance test abnormal [Recovering/Resolving]
  - Dyspnoea [Recovering/Resolving]
  - Oxygen consumption increased [Recovering/Resolving]
  - Therapy non-responder [Unknown]
